FAERS Safety Report 7285780-2 (Version None)
Quarter: 2011Q1

REPORT INFORMATION
  Report Type: 
  Country: None (occurrence: None)
  Receive Date: 20110210
  Receipt Date: 20110201
  Transmission Date: 20110831
  Serious: Yes (Other)
  Sender: FDA-Public Use
  Company Number: PHHY2011AU08402

PATIENT
  Age: 60 Year
  Sex: Female

DRUGS (5)
  1. FLUDARA [Suspect]
     Dosage: 03X02
  2. RITUXIMAB [Suspect]
     Indication: WALDENSTROM'S MACROGLOBULINAEMIA
     Dosage: 03X02
  3. FLUDARA [Suspect]
     Indication: WALDENSTROM'S MACROGLOBULINAEMIA
     Dosage: 04 CYCLES
  4. CYCLOPHOSPHAMIDE [Suspect]
     Indication: WALDENSTROM'S MACROGLOBULINAEMIA
     Dosage: 04 CYCLES
  5. CYCLOPHOSPHAMIDE [Suspect]
     Dosage: 03X02

REACTIONS (2)
  - MYELODYSPLASTIC SYNDROME [None]
  - REFRACTORY ANAEMIA [None]
